FAERS Safety Report 7911567-0 (Version None)
Quarter: 2011Q4

REPORT INFORMATION
  Report Type: 
  Country: None (occurrence: None)
  Receive Date: 20111109
  Receipt Date: 20111026
  Transmission Date: 20120403
  Serious: Yes (Hospitalization)
  Sender: FDA-Public Use
  Company Number: TRP_07745_2011

PATIENT
  Age: 28 Year
  Sex: Female

DRUGS (14)
  1. RIBAVIRIN [Suspect]
     Indication: HEPATITIS C
     Dosage: 400 MILLIGRAM/ DAY, 400 MG/ DAY, ORAL
     Route: 048
     Dates: start: 20110511, end: 20110512
  2. SYMBICORT(2 DOSAGE FORMS) [Concomitant]
  3. PROZAC (80 MILLIGRAM) [Concomitant]
  4. HYDROCODONE BITARTRATE [Concomitant]
  5. ROXICODONE [Concomitant]
  6. PEGASYS [Suspect]
     Indication: HEPATITIS C
     Dosage: 1 IN 1 WK, SUBCUTANEOUS
     Route: 058
     Dates: start: 20110511, end: 20110511
  7. IUD [Concomitant]
  8. LORTAB [Concomitant]
  9. WELLBUTRIN (150 MILLIGRAM) [Concomitant]
  10. MORPHINE [Concomitant]
  11. MARIJUANA [Concomitant]
  12. SINGULAIR(10 MILLIGRAM) [Concomitant]
  13. TRAZODONE(150 MILLIGRAM) [Concomitant]
  14. SUBOXONE [Concomitant]

REACTIONS (5)
  - ASTHMA [None]
  - FOETAL EXPOSURE DURING PREGNANCY [None]
  - DEATH OF RELATIVE [None]
  - DRUG ABUSE [None]
  - VOMITING [None]
